FAERS Safety Report 15193286 (Version 1)
Quarter: 2018Q3

REPORT INFORMATION
  Report Type: Spontaneous
  Country: FR (occurrence: FR)
  Receive Date: 20180725
  Receipt Date: 20180725
  Transmission Date: 20181010
  Serious: Yes (Other)
  Sender: FDA-Public Use
  Company Number: FR-CONCORDIA PHARMACEUTICALS INC.-E2B_00013271

PATIENT
  Age: 65 Year
  Sex: Male

DRUGS (15)
  1. ESBRIET [Suspect]
     Active Substance: PIRFENIDONE
     Dosage: WITH A GRADUAL INCREASE IN DOSAGE OVER A 14?DAY PERIOD
     Dates: start: 201412
  2. ESBRIET [Suspect]
     Active Substance: PIRFENIDONE
     Dosage: 3 CAPSULES
     Route: 048
  3. ESBRIET [Suspect]
     Active Substance: PIRFENIDONE
     Indication: IDIOPATHIC PULMONARY FIBROSIS
     Dosage: ADJUSTED
     Route: 048
  4. ESBRIET [Suspect]
     Active Substance: PIRFENIDONE
     Dates: start: 201501
  5. ESBRIET [Suspect]
     Active Substance: PIRFENIDONE
     Dates: start: 201503, end: 201503
  6. ESBRIET [Suspect]
     Active Substance: PIRFENIDONE
     Dosage: 9 CAPSULES PER DAY
     Route: 048
     Dates: start: 20150128
  7. CLOPIDOGREL [Concomitant]
     Active Substance: CLOPIDOGREL BISULFATE
  8. ESBRIET [Suspect]
     Active Substance: PIRFENIDONE
     Route: 048
     Dates: start: 20150227, end: 20150311
  9. ESBRIET [Suspect]
     Active Substance: PIRFENIDONE
     Dosage: (3 CAPSULES/DAY FOR 7 DAYS, THEN 6 CAPSULES/DAY FOR 7 DAYS AND THEN 9 CAPSULES/DAY) ?CAPSULE
     Route: 048
     Dates: start: 20141215, end: 20150202
  10. INEXIUM [Suspect]
     Active Substance: ESOMEPRAZOLE
     Indication: PRODUCT USED FOR UNKNOWN INDICATION
     Route: 048
     Dates: start: 20141215
  11. LYSINE ACETYLSALICYLATE [Concomitant]
     Active Substance: ASPIRIN DL-LYSINE
  12. PREDNISOLONE. [Suspect]
     Active Substance: PREDNISOLONE
     Indication: COUGH
     Route: 048
     Dates: start: 20141215
  13. PERINDOPRIL [Concomitant]
     Active Substance: PERINDOPRIL
  14. PLAVIX [Concomitant]
     Active Substance: CLOPIDOGREL BISULFATE
  15. ESBRIET [Suspect]
     Active Substance: PIRFENIDONE
     Dates: end: 201502

REACTIONS (7)
  - Weight decreased [Unknown]
  - Hyperleukocytosis [Recovering/Resolving]
  - Decreased appetite [Recovered/Resolved]
  - Dyspepsia [Unknown]
  - White blood cell count increased [Recovering/Resolving]
  - Nausea [Unknown]
  - Asthenia [Recovered/Resolved]

NARRATIVE: CASE EVENT DATE: 20141229
